FAERS Safety Report 24897972 (Version 2)
Quarter: 2025Q1

REPORT INFORMATION
  Report Type: Spontaneous
  Country: BE (occurrence: BE)
  Receive Date: 20250129
  Receipt Date: 20250306
  Transmission Date: 20250408
  Serious: Yes (Other)
  Sender: ROCHE
  Company Number: BE-ROCHE-10000189204

PATIENT
  Age: 53 Year
  Sex: Male

DRUGS (1)
  1. TRUXIMA [Suspect]
     Active Substance: RITUXIMAB-ABBS
     Indication: Glomerulonephritis membranous
     Dosage: MAINTENANCE THERAPY OF 500 MG EVERY 6 MONTHS.
     Route: 065
     Dates: start: 202312, end: 202401

REACTIONS (2)
  - Nephrotic syndrome [Unknown]
  - Off label use [Unknown]

NARRATIVE: CASE EVENT DATE: 20241201
